FAERS Safety Report 5733296-4 (Version None)
Quarter: 2008Q2

REPORT INFORMATION
  Report Type: 
  Country: None (occurrence: None)
  Receive Date: 20080509
  Receipt Date: 20080505
  Transmission Date: 20081010
  Serious: Yes (Other)
  Sender: FDA-Public Use
  Company Number: A0711736A

PATIENT
  Age: 51 Year
  Sex: Female
  Weight: 122.7 kg

DRUGS (2)
  1. ALLI [Suspect]
     Indication: WEIGHT LOSS DIET
     Route: 048
     Dates: start: 20070801
  2. MULTI-VITAMIN [Concomitant]

REACTIONS (2)
  - NASOPHARYNGITIS [None]
  - RECTAL HAEMORRHAGE [None]
